FAERS Safety Report 6262949-7 (Version None)
Quarter: 2009Q3

REPORT INFORMATION
  Report Type: 
  Country: None (occurrence: None)
  Receive Date: 20090701
  Receipt Date: 20090622
  Transmission Date: 20100115
  Serious: Yes (Other)
  Sender: FDA-Public Use
  Company Number: THYM-1000987

PATIENT
  Age: 35 Year
  Sex: Male

DRUGS (5)
  1. THYMOGLOBULIN [Suspect]
     Indication: KIDNEY TRANSPLANT REJECTION
     Dosage: INTRAVENOUS
     Route: 042
     Dates: start: 20090424, end: 20090424
  2. MYCOPHENOLATE MOFETIL [Concomitant]
  3. PREDNISOLONE [Concomitant]
  4. HYDROCORTISONE [Concomitant]
  5. TACROLIMUS [Concomitant]

REACTIONS (2)
  - INFUSION RELATED REACTION [None]
  - MALAISE [None]
